FAERS Safety Report 7536843-5 (Version None)
Quarter: 2011Q2

REPORT INFORMATION
  Report Type: 
  Country: None (occurrence: None)
  Receive Date: 20110609
  Receipt Date: 20110604
  Transmission Date: 20111010
  Serious: Yes (Hospitalization)
  Sender: FDA-Public Use
  Company Number: CO-ROCHE-780658

PATIENT
  Sex: Male

DRUGS (3)
  1. MIRCERA [Suspect]
     Route: 058
     Dates: start: 20110319
  2. HUMAN INSULINE [Concomitant]
     Indication: DIABETES MELLITUS
     Route: 058
  3. PREDNISOLONE [Concomitant]
     Indication: ANTIINFLAMMATORY THERAPY
     Route: 048

REACTIONS (1)
  - DIABETIC FOOT [None]
